FAERS Safety Report 8493722-7 (Version None)
Quarter: 2012Q3

REPORT INFORMATION
  Report Type: 
  Country: None (occurrence: None)
  Receive Date: 20120706
  Receipt Date: 20120625
  Transmission Date: 20120928
  Serious: Yes (Hospitalization)
  Sender: FDA-Public Use
  Company Number: AU-ELI_LILLY_AND_COMPANY-AU201204007968

PATIENT
  Age: 69 Year
  Sex: Male
  Weight: 117 kg

DRUGS (14)
  1. LINAGLIPTIN [Concomitant]
     Dosage: 5 MG, QD
  2. MICARDIS [Concomitant]
     Indication: CORONARY ARTERY DISEASE
     Dosage: 40 MG, QD
  3. WARFARIN SODIUM [Concomitant]
     Dosage: UNK, UNKNOWN
  4. NOVOLOG [Concomitant]
     Indication: TYPE 2 DIABETES MELLITUS
     Dosage: 54 U, QD
  5. PROGOUT [Concomitant]
     Indication: GOUT
     Dosage: 100 MG, QD
  6. BYETTA [Suspect]
     Dosage: 5 UG, BID
     Route: 058
     Dates: start: 20120328, end: 20120408
  7. METFORMIN HCL [Concomitant]
     Indication: TYPE 2 DIABETES MELLITUS
     Dosage: 425 MG, BID
  8. GLICLAZIDE [Concomitant]
     Indication: TYPE 2 DIABETES MELLITUS
     Dosage: 120 MG, QD
  9. ASPIRIN [Concomitant]
     Indication: CORONARY ARTERY DISEASE
     Dosage: 100 MG, QD
  10. CRESTOR [Concomitant]
     Indication: HYPERLIPIDAEMIA
     Dosage: 40 MG, QD
  11. MONODUR [Concomitant]
     Indication: CORONARY ARTERY DISEASE
     Dosage: 60 MG, QD
  12. UREMIDE [Concomitant]
     Dosage: 40 MG, UNKNOWN
  13. LANTUS [Concomitant]
     Dosage: UNK, UNKNOWN
  14. FELODIPINE [Concomitant]
     Indication: HYPERTENSION
     Dosage: 2.5 MG, QD

REACTIONS (9)
  - MUSCULOSKELETAL CHEST PAIN [None]
  - NAUSEA [None]
  - OFF LABEL USE [None]
  - CHEST DISCOMFORT [None]
  - DRUG INTOLERANCE [None]
  - RENAL FAILURE ACUTE [None]
  - VOMITING [None]
  - INTERNATIONAL NORMALISED RATIO INCREASED [None]
  - HYPOGLYCAEMIA [None]
